FAERS Safety Report 6844004-8 (Version None)
Quarter: 2010Q3

REPORT INFORMATION
  Report Type: 
  Country: None (occurrence: None)
  Receive Date: 20100715
  Receipt Date: 20100708
  Transmission Date: 20110219
  Serious: Yes (Other)
  Sender: FDA-Public Use
  Company Number: FR-PFIZER INC-2010047517

PATIENT
  Age: 63 Year
  Sex: Male
  Weight: 62 kg

DRUGS (6)
  1. SUTENT [Suspect]
     Indication: RENAL CANCER METASTATIC
     Dosage: UNK
     Dates: start: 20080301
  2. CASODEX [Interacting]
     Indication: PROSTATE CANCER
     Dosage: UNK
     Dates: start: 20080401, end: 20080401
  3. NEXIUM [Concomitant]
     Indication: GASTRITIS
     Dosage: UNK
     Route: 048
     Dates: start: 20080301
  4. DEXERYL ^PIERRE FABRE^ [Concomitant]
     Indication: DRY SKIN
     Dosage: UNK
     Dates: start: 20080201
  5. GAVISCON [Concomitant]
     Indication: GASTRITIS
     Dosage: UNK
     Route: 048
     Dates: start: 20080101
  6. SODIUM BICARBONATE [Concomitant]
     Indication: MUCOSAL INFLAMMATION
     Dosage: UNK
     Dates: start: 20080101

REACTIONS (4)
  - CYTOLYTIC HEPATITIS [None]
  - DRUG INTERACTION [None]
  - DYSPEPSIA [None]
  - HYPOTHYROIDISM [None]
